FAERS Safety Report 4455623-0 (Version None)
Quarter: 2004Q3

REPORT INFORMATION
  Report Type: 
  Country: None (occurrence: None)
  Receive Date: 20040922
  Receipt Date: 20040913
  Transmission Date: 20050211
  Serious: Yes (Hospitalization)
  Sender: FDA-Public Use
  Company Number: DE-JNJFOC-20040903779

PATIENT
  Sex: Female
  Weight: 52 kg

DRUGS (1)
  1. ORTHO EVRA [Suspect]
     Indication: CONTRACEPTION
     Route: 062

REACTIONS (6)
  - COUGH [None]
  - HAEMOPTYSIS [None]
  - INFARCTION [None]
  - PNEUMONIA [None]
  - PULMONARY EMBOLISM [None]
  - THROAT IRRITATION [None]
